FAERS Safety Report 9122684 (Version 1)
Quarter: 2013Q1

REPORT INFORMATION
  Report Type: Spontaneous
  Country: US (occurrence: US)
  Receive Date: 20130114
  Receipt Date: 20130114
  Transmission Date: 20140127
  Serious: Yes (Hospitalization)
  Sender: FDA-Public Use
  Company Number: US-BAYER-2013-003883

PATIENT
  Age: 27 Year
  Sex: Female
  Weight: 65.31 kg

DRUGS (10)
  1. YASMIN [Suspect]
  2. YAZ [Suspect]
  3. PROMETHAZINE VC [Concomitant]
     Dosage: 6.25MG/5ML
  4. LEVAQUIN [Concomitant]
     Dosage: 750 MG, UNK
     Route: 048
  5. ZITHROMAX [Concomitant]
     Dosage: 250 MG, UNK
     Route: 048
  6. NABUMETONE [Concomitant]
     Dosage: 500MG PO BID (INTERPRETED AS BY MOUTH TWICE DAILY)
     Route: 048
  7. CEFTRIAXONE [Concomitant]
     Dosage: 1 GM, INJECTION
  8. LIDOCAINE [Concomitant]
     Dosage: 1% - 10ML, INJECTION
  9. GYNAZOLE [Concomitant]
     Dosage: 2% CREAM/5.8 GM
  10. AZITHROMYCIN [Concomitant]
     Dosage: 250 MG, UNK

REACTIONS (2)
  - Pulmonary embolism [None]
  - Deep vein thrombosis [Recovered/Resolved]
